FAERS Safety Report 13516531 (Version 6)
Quarter: 2018Q1

REPORT INFORMATION
  Report Type: Report from Study
  Country: US (occurrence: US)
  Receive Date: 20170505
  Receipt Date: 20180104
  Transmission Date: 20180508
  Serious: No
  Sender: FDA-Public Use
  Company Number: PHEH2017US013266

PATIENT
  Age: 58 Year
  Sex: Female
  Weight: 43.9 kg

DRUGS (2)
  1. COSENTYX [Suspect]
     Active Substance: SECUKINUMAB
     Dosage: 150 MG/ML, QMO (EVERY 4 WEEKS)
     Route: 058
  2. COSENTYX [Suspect]
     Active Substance: SECUKINUMAB
     Indication: ANKYLOSING SPONDYLITIS
     Dosage: 150 MG, QW
     Route: 058
     Dates: start: 20170318

REACTIONS (7)
  - Drug ineffective [Unknown]
  - Onychomadesis [Unknown]
  - Skin exfoliation [Unknown]
  - Dry skin [Unknown]
  - Fungal infection [Unknown]
  - Skin papilloma [Recovered/Resolved]
  - Nail discolouration [Unknown]

NARRATIVE: CASE EVENT DATE: 20170408
